FAERS Safety Report 13331837 (Version 1)
Quarter: 2017Q1

REPORT INFORMATION
  Report Type: Spontaneous
  Country: US (occurrence: US)
  Receive Date: 20170313
  Receipt Date: 20170313
  Transmission Date: 20170428
  Serious: No
  Sender: FDA-Public Use
  Company Number: US-PFIZER INC-2017095319

PATIENT
  Sex: Male

DRUGS (1)
  1. ZOLOFT [Suspect]
     Active Substance: SERTRALINE HYDROCHLORIDE
     Dosage: 25 MG, 1X/DAY

REACTIONS (8)
  - Anxiety [Unknown]
  - Drug dose omission [Unknown]
  - Alopecia [Unknown]
  - Attention deficit/hyperactivity disorder [Unknown]
  - Depression [Unknown]
  - Confusional state [Unknown]
  - Rash [Unknown]
  - Drug ineffective [Unknown]
